FAERS Safety Report 6596323-0 (Version None)
Quarter: 2010Q1

REPORT INFORMATION
  Report Type: 
  Country: None (occurrence: None)
  Receive Date: 20100223
  Receipt Date: 20100212
  Transmission Date: 20100710
  Serious: Yes (Other)
  Sender: FDA-Public Use
  Company Number: PHHY2009CN55028

PATIENT
  Age: 25 Year
  Sex: Male

DRUGS (2)
  1. LDT600 [Suspect]
     Indication: HEPATITIS B
     Dosage: 600 MG, QD
     Dates: start: 20070901, end: 20080501
  2. INTERFERON [Suspect]
     Indication: HEPATITIS B
     Dosage: 5000000 U, QOD
     Route: 025
     Dates: start: 20060701

REACTIONS (5)
  - BLOOD CREATINE PHOSPHOKINASE INCREASED [None]
  - HYPOAESTHESIA [None]
  - MYALGIA [None]
  - NERVE ROOT INJURY [None]
  - NEUROPATHY PERIPHERAL [None]
